FAERS Safety Report 6643651-6 (Version None)
Quarter: 2010Q1

REPORT INFORMATION
  Report Type: 
  Country: None (occurrence: None)
  Receive Date: 20100321
  Receipt Date: 20100308
  Transmission Date: 20100710
  Serious: Yes (Other)
  Sender: FDA-Public Use
  Company Number: US-ELI_LILLY_AND_COMPANY-US201003002530

PATIENT
  Sex: Female

DRUGS (1)
  1. BYETTA [Suspect]

REACTIONS (4)
  - ABDOMINAL DISCOMFORT [None]
  - HEPATIC ENZYME INCREASED [None]
  - PANCREATITIS [None]
  - WEIGHT DECREASED [None]
